FAERS Safety Report 9548384 (Version 1)
Quarter: 2013Q3

REPORT INFORMATION
  Report Type: Spontaneous
  Country: GB (occurrence: None)
  Receive Date: 20130711
  Receipt Date: 20130711
  Transmission Date: 20140515
  Serious: Yes (Congenital Anomaly)
  Sender: FDA-Public Use
  Company Number: 2013-01209

PATIENT
  Sex: Male
  Weight: 2.7 kg

DRUGS (2)
  1. LEVETIRACETAM (UNKNOWN) (LEVETIRACETAM) [Suspect]
     Indication: PARTIAL SEIZURES
     Route: 064
  2. LAMOTRIGINE [Concomitant]

REACTIONS (1)
  - Talipes [None]
